FAERS Safety Report 15471466 (Version 2)
Quarter: 2018Q4

REPORT INFORMATION
  Report Type: Spontaneous
  Country: US (occurrence: US)
  Receive Date: 20181007
  Receipt Date: 20181022
  Transmission Date: 20190205
  Serious: Yes (Other)
  Sender: FDA-Public Use
  Company Number: US-BIOGEN-2018BI00642101

PATIENT
  Sex: Female

DRUGS (2)
  1. AUBAGIO [Suspect]
     Active Substance: TERIFLUNOMIDE
     Indication: MULTIPLE SCLEROSIS
     Route: 065
     Dates: end: 2015
  2. TECFIDERA [Suspect]
     Active Substance: DIMETHYL FUMARATE
     Indication: MULTIPLE SCLEROSIS
     Route: 065
     Dates: start: 20140923

REACTIONS (3)
  - Hot flush [Recovered/Resolved]
  - Arthritis bacterial [Recovered/Resolved]
  - Ligament injury [Recovered/Resolved]

NARRATIVE: CASE EVENT DATE: 2015
